FAERS Safety Report 6864116-2 (Version None)
Quarter: 2010Q3

REPORT INFORMATION
  Report Type: 
  Country: None (occurrence: None)
  Receive Date: 20100720
  Receipt Date: 20100707
  Transmission Date: 20110219
  Serious: Yes (Disabling)
  Sender: FDA-Public Use
  Company Number: ACO_01342_2010

PATIENT
  Age: 48 Year
  Sex: Female
  Weight: 68.0396 kg

DRUGS (5)
  1. AMPYRA [Suspect]
     Indication: GAIT DISTURBANCE
     Dosage: 10 MG BID, 3 DOSES ORAL
     Route: 048
     Dates: start: 20100601, end: 20100601
  2. REBIF [Concomitant]
  3. SKELAXIN [Concomitant]
  4. SIMCOR [Concomitant]
  5. ALBUTEROL [Concomitant]

REACTIONS (1)
  - DIPLEGIA [None]
